FAERS Safety Report 4273206-2 (Version None)
Quarter: 2004Q1

REPORT INFORMATION
  Report Type: 
  Country: None (occurrence: None)
  Receive Date: 20040116
  Receipt Date: 20021202
  Transmission Date: 20041129
  Serious: Yes (Death, Hospitalization)
  Sender: FDA-Public Use
  Company Number: PHHO2002NO09624

PATIENT
  Age: 46 Year
  Weight: 75 kg

DRUGS (5)
  1. LIPITOR [Concomitant]
     Dosage: 20 MG
     Dates: start: 20020427, end: 20021023
  2. LESCOL [Suspect]
     Indication: RENAL TRANSPLANT
     Dosage: UNK, NO TREATMENT
  3. NEORAL [Suspect]
     Indication: RENAL TRANSPLANT
     Dosage: 75 MG, BID
     Route: 048
     Dates: start: 19930101, end: 20021023
  4. PREDNISOLONE [Suspect]
     Indication: RENAL TRANSPLANT
     Dates: start: 19930101
  5. KEFLEX [Concomitant]

REACTIONS (7)
  - BLOOD PRESSURE INCREASED [None]
  - BRAIN OEDEMA [None]
  - CEREBRAL ISCHAEMIA [None]
  - CEREBROVASCULAR ACCIDENT [None]
  - ENCEPHALITIS [None]
  - PNEUMONIA [None]
  - VERTIGO [None]
